FAERS Safety Report 12654120 (Version 1)
Quarter: 2016Q3

REPORT INFORMATION
  Report Type: Spontaneous
  Country: US (occurrence: None)
  Receive Date: 20160815
  Receipt Date: 20160815
  Transmission Date: 20161109
  Serious: Yes (Other)
  Sender: FDA-Public Use
  Company Number: None

PATIENT
  Age: 37 Year
  Sex: Male
  Weight: 88.45 kg

DRUGS (5)
  1. AMOXICILLIN 500 MG TEVA [Suspect]
     Active Substance: AMOXICILLIN
     Indication: OROPHARYNGEAL PAIN
     Dosage: EVERY 8 HOURS
     Route: 048
     Dates: start: 20160801, end: 20160805
  2. AMOXICILLIN 500 MG TEVA [Suspect]
     Active Substance: AMOXICILLIN
     Indication: INFECTION
     Dosage: EVERY 8 HOURS
     Route: 048
     Dates: start: 20160801, end: 20160805
  3. VITAMIN C [Concomitant]
     Active Substance: ASCORBIC ACID
  4. MULIT VITAMIN [Concomitant]
  5. ASPIRIN. [Concomitant]
     Active Substance: ASPIRIN

REACTIONS (1)
  - Hypersensitivity [None]

NARRATIVE: CASE EVENT DATE: 20160805
